FAERS Safety Report 24581001 (Version 1)
Quarter: 2024Q4

REPORT INFORMATION
  Report Type: Report from Study
  Country: CA (occurrence: CA)
  Receive Date: 20241105
  Receipt Date: 20241105
  Transmission Date: 20250115
  Serious: Yes (Death)
  Sender: DR REDDYS
  Company Number: CA-DRL-USA-CLI/CAN/24/0016278

PATIENT
  Age: 64 Year
  Sex: Female

DRUGS (2)
  1. ZOLEDRONIC ACID [Suspect]
     Active Substance: ZOLEDRONIC ACID
     Indication: Osteoporosis
     Dosage: 5 MG/100 ML (ONCE YEARLY)
     Route: 065
     Dates: start: 20220729
  2. ZOLEDRONIC ACID [Suspect]
     Active Substance: ZOLEDRONIC ACID
     Dosage: 5 MG/100 ML (ONCE YEARLY)
     Route: 065
     Dates: start: 20230831

REACTIONS (1)
  - Death [Fatal]
